FAERS Safety Report 25401601 (Version 1)
Quarter: 2025Q2

REPORT INFORMATION
  Report Type: Spontaneous
  Country: US (occurrence: US)
  Receive Date: 20250605
  Receipt Date: 20250605
  Transmission Date: 20250716
  Serious: No
  Sender: TARO
  Company Number: US-TARO PHARMACEUTICALS USA INC.-2025TAR00867

PATIENT

DRUGS (2)
  1. NAFTIFINE HYDROCHLORIDE [Suspect]
     Active Substance: NAFTIFINE HYDROCHLORIDE
     Indication: Tinea pedis
     Route: 061
  2. NAFTIFINE HYDROCHLORIDE [Suspect]
     Active Substance: NAFTIFINE HYDROCHLORIDE
     Indication: Fungal infection
     Route: 065
     Dates: start: 202503

REACTIONS (3)
  - Adverse event [Unknown]
  - Product container issue [Unknown]
  - Product use issue [Unknown]
